FAERS Safety Report 12543934 (Version 1)
Quarter: 2016Q3

REPORT INFORMATION
  Report Type: Spontaneous
  Country: US (occurrence: US)
  Receive Date: 20160711
  Receipt Date: 20160711
  Transmission Date: 20161109
  Serious: No
  Sender: FDA-Public Use
  Company Number: US-GLAXOSMITHKLINE-US2016098100

PATIENT
  Age: 79 Year
  Sex: Female

DRUGS (1)
  1. SENSODYNE REPAIR AND PROTECT [Suspect]
     Active Substance: STANNOUS FLUORIDE
     Indication: DENTAL CLEANING
     Dosage: UNK
     Dates: start: 201605, end: 201606

REACTIONS (1)
  - Lip exfoliation [Recovered/Resolved]
